FAERS Safety Report 5156621-4 (Version None)
Quarter: 2006Q4

REPORT INFORMATION
  Report Type: 
  Country: None (occurrence: None)
  Receive Date: 20061115
  Receipt Date: 20061102
  Transmission Date: 20070319
  Serious: Yes (Other)
  Sender: FDA-Public Use
  Company Number: 232133

PATIENT
  Age: 52 Year
  Sex: Female

DRUGS (4)
  1. AVASTIN [Suspect]
     Indication: COLORECTAL CANCER METASTATIC
  2. FLUOROURACIL [Concomitant]
  3. LEUCOVORIN    (LEUCOVORIN CALIUM) [Concomitant]
  4. OXALIPLATIN [Concomitant]

REACTIONS (1)
  - MULTIPLE MYELOMA [None]
